FAERS Safety Report 7126197-0 (Version None)
Quarter: 2010Q4

REPORT INFORMATION
  Report Type: 
  Country: None (occurrence: None)
  Receive Date: 20101129
  Receipt Date: 20101117
  Transmission Date: 20110411
  Serious: Yes (Other)
  Sender: FDA-Public Use
  Company Number: JP-ASTRAZENECA-2010SE50761

PATIENT
  Age: 73 Year
  Sex: Female

DRUGS (3)
  1. IRESSA [Suspect]
     Indication: LUNG ADENOCARCINOMA
     Route: 048
     Dates: start: 20081001, end: 20090916
  2. OXYCODONE HYDROCHLORIDE [Concomitant]
     Indication: ANALGESIC THERAPY
     Dosage: DOSE UNKNOWN
     Route: 065
  3. STRONTIUM CHLORIDE SR-89 [Concomitant]
     Indication: ANALGESIC THERAPY
     Dosage: DOSE UNKNOWN
     Route: 065

REACTIONS (1)
  - DERMATITIS [None]
